FAERS Safety Report 6108602-1 (Version None)
Quarter: 2009Q1

REPORT INFORMATION
  Report Type: 
  Country: None (occurrence: None)
  Receive Date: 20090305
  Receipt Date: 20090217
  Transmission Date: 20090719
  Serious: Yes (Death)
  Sender: FDA-Public Use
  Company Number: 8043654

PATIENT
  Age: 75 Year
  Sex: Male

DRUGS (6)
  1. PREDNISOLONE /00016204/ [Suspect]
  2. RITUXIMAB [Suspect]
  3. CHLORAMBUCIL [Suspect]
  4. VINCRISTINE /00078802/ [Suspect]
  5. PROCARBAZINE [Suspect]
  6. ARSENIC TRIOXIDE [Suspect]
     Dosage: 1850 MG PO
     Route: 048

REACTIONS (4)
  - BIOPSY BONE MARROW ABNORMAL [None]
  - PERIPHERAL T-CELL LYMPHOMA UNSPECIFIED [None]
  - PLEURAL EFFUSION [None]
  - PNEUMONIA [None]
